FAERS Safety Report 17947317 (Version 1)
Quarter: 2020Q2

REPORT INFORMATION
  Report Type: Spontaneous
  Country: US (occurrence: US)
  Receive Date: 20200625
  Receipt Date: 20200625
  Transmission Date: 20200714
  Serious: No
  Sender: FDA-Public Use
  Company Number: US-NOVOPROD-702482

PATIENT
  Age: 69 Year
  Sex: Female

DRUGS (1)
  1. OZEMPIC [Suspect]
     Active Substance: SEMAGLUTIDE
     Indication: DIABETES MELLITUS
     Dosage: UNK
     Route: 058

REACTIONS (3)
  - Constipation [Unknown]
  - Gastrointestinal disorder [Unknown]
  - Adverse reaction [Recovered/Resolved]
